FAERS Safety Report 8716281 (Version 2)
Quarter: 2013Q4

REPORT INFORMATION
  Report Type: Spontaneous
  Country: US (occurrence: US)
  Receive Date: 20120810
  Receipt Date: 20131106
  Transmission Date: 20140711
  Serious: Yes (Hospitalization)
  Sender: FDA-Public Use
  Company Number: US-009507513-1208USA000522

PATIENT
  Sex: Female
  Weight: 135.15 kg

DRUGS (16)
  1. PEGINTRON [Suspect]
     Indication: HEPATITIS C
     Dosage: 150 MICROGRAM, QW
     Route: 058
     Dates: start: 20120413, end: 2012
  2. RIBAVIRIN (WARRICK) [Suspect]
     Indication: HEPATITIS C
     Route: 048
  3. SIMETHICONE [Concomitant]
     Dosage: 125 MG, UNK
     Route: 048
  4. FLUTICASONE PROPIONATE [Concomitant]
     Dosage: 1 PUFF IN EACH NOSTRIL, QD
     Route: 045
  5. FLUTICASONE PROPIONATE [Concomitant]
     Dosage: 1 PUFF IN EACH NOSTRIL, QD
     Route: 045
  6. VITAMINS (UNSPECIFIED) [Concomitant]
     Dosage: 1 TABLET, QD
     Route: 048
  7. ASPIRIN [Concomitant]
     Dosage: 325 MG, QD
     Route: 048
  8. ALPRAZOLAM [Concomitant]
     Dosage: 0.25 MG, TID
     Route: 048
  9. TRAMADOL HYDROCHLORIDE [Concomitant]
     Dosage: 50 MG, PRN
  10. SYNTHROID [Concomitant]
     Dosage: 88 MICROGRAM, QAM
     Route: 048
  11. PROZAC [Concomitant]
     Dosage: 40 MG, QAM
     Route: 048
  12. HYDROCHLOROTHIAZIDE [Concomitant]
     Dosage: 25 MG, QD
     Route: 048
  13. PRAVASTATIN SODIUM [Concomitant]
     Dosage: 40 MG, QD
     Route: 048
  14. BENTYL [Concomitant]
     Dosage: 10 MG, PRN
     Route: 048
  15. MUPIROCIN [Concomitant]
     Dosage: 1 APPLICATION TO AFFECTED AREA SMALL AMOUNT, TID
     Route: 061
  16. PHENERGAN (PROMETHAZINE HYDROCHLORIDE) [Concomitant]
     Indication: NAUSEA
     Dosage: UNK

REACTIONS (2)
  - Anaemia [Unknown]
  - Depression [Unknown]
